FAERS Safety Report 22219476 (Version 1)
Quarter: 2023Q2

REPORT INFORMATION
  Report Type: Spontaneous
  Country: US (occurrence: None)
  Receive Date: 20230412
  Receipt Date: 20230412
  Transmission Date: 20230722
  Serious: Yes (Other)
  Sender: FDA-Public Use
  Company Number: None

PATIENT
  Sex: Female

DRUGS (4)
  1. PRALUENT [Suspect]
     Active Substance: ALIROCUMAB
     Indication: Product used for unknown indication
     Route: 058
  2. FD+C RED NO. 40 [Suspect]
     Active Substance: FD+C RED NO. 40
  3. UNSPECIFIED INGREDIENT [Suspect]
     Active Substance: UNSPECIFIED INGREDIENT
  4. COCOA [Suspect]
     Active Substance: COCOA

REACTIONS (4)
  - Urticaria [None]
  - Illness [None]
  - Food allergy [None]
  - Drug hypersensitivity [None]
